FAERS Safety Report 8173413-2 (Version None)
Quarter: 2012Q1

REPORT INFORMATION
  Report Type: 
  Country: None (occurrence: None)
  Receive Date: 20120229
  Receipt Date: 20120223
  Transmission Date: 20120608
  Serious: Yes (Other)
  Sender: FDA-Public Use
  Company Number: DK-TEVA-324192ISR

PATIENT
  Sex: Female

DRUGS (5)
  1. METHOTREXATE [Concomitant]
     Route: 030
     Dates: start: 20070313
  2. PREDNISOLONE [Concomitant]
     Dates: start: 20051213
  3. METHOTREXATE [Suspect]
     Indication: RHEUMATOID ARTHRITIS
     Dosage: STRENGTH: 2.5 MG
     Route: 048
     Dates: start: 20031014
  4. REMICADE [Suspect]
     Indication: RHEUMATOID ARTHRITIS
     Dosage: DOSAGE: 300 MG EVERY 8TH WEEK.
     Route: 042
     Dates: start: 20021126
  5. METHOTREXATE [Concomitant]
     Route: 058
     Dates: start: 20070604

REACTIONS (2)
  - LUNG ADENOCARCINOMA [None]
  - THYROID CANCER [None]
